FAERS Safety Report 6196209-X (Version None)
Quarter: 2009Q2

REPORT INFORMATION
  Report Type: 
  Country: None (occurrence: None)
  Receive Date: 20090520
  Receipt Date: 20090508
  Transmission Date: 20091009
  Serious: Yes (Other)
  Sender: FDA-Public Use
  Company Number: US-NOVOPROD-256492

PATIENT
  Sex: Female
  Weight: 66.667 kg

DRUGS (11)
  1. ACTIVELLA [Suspect]
     Indication: MENOPAUSE
     Dosage: 1 MG/.5 MG
     Dates: start: 20030301, end: 20040601
  2. OGEN [Suspect]
     Indication: MENOPAUSE
     Dosage: .625 MG, UNK
     Dates: start: 19970501, end: 19980301
  3. OGEN [Suspect]
  4. PROVERA [Suspect]
     Indication: MENOPAUSE
     Dosage: 5 MG, UNK
     Dates: start: 19970501, end: 19990201
  5. PREMARIN [Suspect]
     Indication: MENOPAUSE
     Dosage: .625 MG, UNK
     Dates: start: 19980301, end: 19990201
  6. PROMETRIUM [Suspect]
     Indication: MENOPAUSE
     Dosage: 100 MG, UNK
     Dates: start: 19990301, end: 20000701
  7. ESTRATAB [Suspect]
     Indication: MENOPAUSE
     Dosage: .625 MG, UNK
     Dates: start: 19990401, end: 20000401
  8. PREFEST [Suspect]
     Indication: MENOPAUSE
     Dosage: 1 MG/.09 MG
     Dates: start: 20000901, end: 20020301
  9. ESTRATEST [Suspect]
     Indication: MENOPAUSE
     Dosage: 1.25 MG/2.5 MG
     Dates: start: 20000401, end: 20000701
  10. CELEBREX [Concomitant]
     Indication: ARTHRITIS
     Route: 048
  11. DYAZIDE [Concomitant]
     Indication: FLUID RETENTION
     Dates: end: 20040601

REACTIONS (1)
  - BREAST CANCER IN SITU [None]
